FAERS Safety Report 19074788 (Version 1)
Quarter: 2021Q1

REPORT INFORMATION
  Report Type: Report from Study
  Country: None (occurrence: US)
  Receive Date: 20210330
  Receipt Date: 20210330
  Transmission Date: 20210420
  Serious: Yes (Other)
  Sender: FDA-Public Use
  Company Number: US-ABBVIE-21K-163-3833639-00

PATIENT
  Age: 20 Year
  Sex: Female

DRUGS (1)
  1. HUMIRA [Suspect]
     Active Substance: ADALIMUMAB
     Indication: RHEUMATOID ARTHRITIS
     Dosage: CITRATE FREE
     Route: 058

REACTIONS (7)
  - Stress [Unknown]
  - Urinary tract infection [Unknown]
  - Fatigue [Unknown]
  - Dehydration [Unknown]
  - Seizure [Unknown]
  - Seizure [Recovered/Resolved]
  - Infection [Unknown]

NARRATIVE: CASE EVENT DATE: 202103
